FAERS Safety Report 20258020 (Version 1)
Quarter: 2021Q4

REPORT INFORMATION
  Report Type: Spontaneous
  Country: US (occurrence: None)
  Receive Date: 20211229
  Receipt Date: 20211229
  Transmission Date: 20220303
  Serious: No
  Sender: FDA-Public Use
  Company Number: None

PATIENT
  Age: 51 Year
  Sex: Female
  Weight: 99 kg

DRUGS (1)
  1. VENOFER [Suspect]
     Active Substance: IRON SUCROSE
     Indication: Anaemia
     Dosage: OTHER FREQUENCY : EVERY 3-4 DAYS;?
     Route: 042
     Dates: start: 20210820, end: 20210917

REACTIONS (6)
  - Insomnia [None]
  - Fatigue [None]
  - Myalgia [None]
  - Myalgia [None]
  - Paraesthesia [None]
  - Disturbance in attention [None]

NARRATIVE: CASE EVENT DATE: 20210913
